FAERS Safety Report 9713327 (Version 1)
Quarter: 2013Q4

REPORT INFORMATION
  Report Type: Spontaneous
  Country: US (occurrence: US)
  Receive Date: 20131126
  Receipt Date: 20131126
  Transmission Date: 20140711
  Serious: No
  Sender: FDA-Public Use
  Company Number: US-TEVA-446304USA

PATIENT
  Age: 70 Year
  Sex: Male

DRUGS (3)
  1. AZILECT [Suspect]
     Indication: PARKINSON^S DISEASE
  2. SINEMET [Concomitant]
     Indication: PARKINSON^S DISEASE
  3. CHEMOTHERAPY REGIMEN [Concomitant]

REACTIONS (1)
  - Balance disorder [Recovered/Resolved]
